FAERS Safety Report 23696127 (Version 3)
Quarter: 2024Q2

REPORT INFORMATION
  Report Type: Spontaneous
  Country: US (occurrence: US)
  Receive Date: 20240402
  Receipt Date: 20240620
  Transmission Date: 20240716
  Serious: No
  Sender: FDA-Public Use
  Company Number: US-ABBVIE-5702586

PATIENT
  Age: 49 Year
  Sex: Female

DRUGS (4)
  1. BOTOX [Suspect]
     Active Substance: ONABOTULINUMTOXINA
     Indication: Skin wrinkling
     Dosage: TIME INTERVAL: AS NECESSARY
     Route: 030
     Dates: start: 2008, end: 2008
  2. BOTOX [Suspect]
     Active Substance: ONABOTULINUMTOXINA
     Indication: Skin wrinkling
     Dosage: TIME INTERVAL: AS NECESSARY: 77 U
     Route: 030
     Dates: start: 20240316, end: 20240316
  3. BOTOX [Suspect]
     Active Substance: ONABOTULINUMTOXINA
     Indication: Skin wrinkling
     Dosage: TIME INTERVAL: AS NECESSARY: 6 U
     Route: 030
     Dates: start: 20240320, end: 20240320
  4. JUVEDERM [Suspect]
     Active Substance: HYALURONIC ACID
     Indication: Product used for unknown indication
     Dosage: DERMAL FILLER
     Route: 065
     Dates: start: 20240316

REACTIONS (5)
  - Lip disorder [Not Recovered/Not Resolved]
  - Eyelid ptosis [Not Recovered/Not Resolved]
  - Swelling face [Not Recovered/Not Resolved]
  - Eyelid sensory disorder [Recovered/Resolved]
  - Eyelid sensory disorder [Not Recovered/Not Resolved]

NARRATIVE: CASE EVENT DATE: 20240316
